FAERS Safety Report 14987418 (Version 1)
Quarter: 2018Q2

REPORT INFORMATION
  Report Type: Report from Study
  Country: None (occurrence: DE)
  Receive Date: 20180608
  Receipt Date: 20180608
  Transmission Date: 20180711
  Serious: Yes (Congenital Anomaly)
  Sender: FDA-Public Use
  Company Number: DE-BAUSCH-BL-2018-016174

PATIENT
  Sex: Male

DRUGS (4)
  1. SULFASALAZINE. [Suspect]
     Active Substance: SULFASALAZINE
     Indication: PRODUCT USED FOR UNKNOWN INDICATION
     Dosage: GESTATIONAL WEEK OF EXPOSURE- 0-17
     Route: 064
  2. PARACETAMOL [Suspect]
     Active Substance: ACETAMINOPHEN
     Indication: PRODUCT USED FOR UNKNOWN INDICATION
     Dosage: GESTATIONAL WEEK OF EXPOSURE- 17-21
     Route: 064
  3. DICLOFENAC [Suspect]
     Active Substance: DICLOFENAC
     Indication: RHEUMATOID ARTHRITIS
     Dosage: 100 MG, AS NEEDED, GESTATIONAL WEEK OF EXPOSURE 0-19 PLUS 4
     Route: 064
  4. HYDROXYCHLOROQUINE [Suspect]
     Active Substance: HYDROXYCHLOROQUINE
     Indication: PRODUCT USED FOR UNKNOWN INDICATION
     Dosage: GESTATIONAL WEEK OF EXPOSURE- 0-13
     Route: 064

REACTIONS (2)
  - Microcephaly [Unknown]
  - Maternal exposure during pregnancy [Unknown]
